FAERS Safety Report 5617404-1 (Version None)
Quarter: 2008Q1

REPORT INFORMATION
  Report Type: 
  Country: None (occurrence: None)
  Receive Date: 20080207
  Receipt Date: 20071119
  Transmission Date: 20080703
  Serious: No
  Sender: FDA-Public Use
  Company Number: A0671285A

PATIENT
  Age: 50 Year
  Sex: Female
  Weight: 88.6 kg

DRUGS (10)
  1. PAXIL [Suspect]
     Indication: DEPRESSION
     Dosage: 60MG PER DAY
     Route: 048
     Dates: start: 20010101, end: 20070720
  2. SUBOXONE [Concomitant]
     Dosage: 8MG PER DAY
     Route: 048
     Dates: start: 20070501, end: 20071101
  3. LEVOTHROID [Concomitant]
     Dosage: .05MG TWICE PER DAY
  4. SEROQUEL [Concomitant]
     Dosage: 25MG PER DAY
     Dates: start: 20070501
  5. BETHANECHOL [Concomitant]
     Dosage: 25MG TWICE PER DAY
  6. SENOKOT [Concomitant]
  7. NEXIUM [Concomitant]
     Dosage: 40MG PER DAY
  8. MIRALAX [Concomitant]
     Route: 048
  9. MULTIVITAMIN WITH IRON [Concomitant]
  10. HORMONE REPLACEMENT [Concomitant]

REACTIONS (2)
  - PALPITATIONS [None]
  - TREMOR [None]
